FAERS Safety Report 4955545-2 (Version None)
Quarter: 2006Q1

REPORT INFORMATION
  Report Type: 
  Country: None (occurrence: None)
  Receive Date: 20060131
  Receipt Date: 20050302
  Transmission Date: 20060701
  Serious: Yes (Other)
  Sender: FDA-Public Use
  Company Number: WAES 0503USA00490

PATIENT
  Sex: Male

DRUGS (1)
  1. PRIMAXIN [Suspect]
     Dosage: 500 MG/Q6H/IV
     Route: 042

REACTIONS (2)
  - CONVULSION [None]
  - PRESCRIBED OVERDOSE [None]
